FAERS Safety Report 9886236 (Version 1)
Quarter: 2014Q1

REPORT INFORMATION
  Report Type: Spontaneous
  Country: IE (occurrence: IE)
  Receive Date: 20140210
  Receipt Date: 20140210
  Transmission Date: 20141002
  Serious: Yes (Other)
  Sender: FDA-Public Use
  Company Number: IE-TEVA-460204ISR

PATIENT
  Age: 58 Year
  Sex: Female
  Weight: 50 kg

DRUGS (1)
  1. CLARITHROMYCIN TEVA 500MG FILM COATED TABLETS [Suspect]
     Indication: SINUSITIS
     Dosage: 1000 MILLIGRAM DAILY;
     Route: 048
     Dates: start: 20140109, end: 20140111

REACTIONS (3)
  - Dizziness [Recovered/Resolved]
  - Nausea [Recovered/Resolved]
  - Angioedema [Recovered/Resolved]
